FAERS Safety Report 10111186 (Version 2)
Quarter: 2014Q2

REPORT INFORMATION
  Report Type: Spontaneous
  Country: US (occurrence: US)
  Receive Date: 20140425
  Receipt Date: 20140530
  Transmission Date: 20141212
  Serious: Yes (Hospitalization, Other)
  Sender: FDA-Public Use
  Company Number: US-JNJFOC-20140415692

PATIENT
  Age: 15 Year
  Sex: Male
  Weight: 44.45 kg

DRUGS (7)
  1. REMICADE [Suspect]
     Indication: CROHN^S DISEASE
     Route: 042
     Dates: start: 201404
  2. REMICADE [Suspect]
     Indication: CROHN^S DISEASE
     Route: 042
     Dates: start: 201312
  3. BUDESONIDE [Suspect]
     Indication: INFECTION
     Route: 048
     Dates: start: 201403
  4. CIPROFLOXACIN [Suspect]
     Indication: ANTIBIOTIC THERAPY
     Route: 042
     Dates: start: 201403
  5. FLAGYL [Suspect]
     Indication: ANTIBIOTIC THERAPY
     Route: 042
     Dates: start: 201403
  6. ASACOL [Concomitant]
     Indication: CROHN^S DISEASE
     Dosage: WAS ON IT SINCE 11-YEARS OF AGE.
     Route: 048
  7. FERROUS SULFATE [Concomitant]
     Indication: CROHN^S DISEASE
     Dosage: WAS ON IT SINCE 11-YEARS OF AGE.
     Route: 048

REACTIONS (4)
  - Psychotic disorder [Unknown]
  - Gastrointestinal infection [Not Recovered/Not Resolved]
  - Crohn^s disease [Recovering/Resolving]
  - Haemoglobin decreased [Recovering/Resolving]
